FAERS Safety Report 20925285 (Version 1)
Quarter: 2022Q2

REPORT INFORMATION
  Report Type: Other
  Country: CA (occurrence: None)
  Receive Date: 20220607
  Receipt Date: 20220607
  Transmission Date: 20220721
  Serious: Yes (Other)
  Sender: FDA-Public Use
  Company Number: CA-ROCHE-2893962

PATIENT
  Sex: Female
  Weight: 52.210 kg

DRUGS (1)
  1. OCREVUS [Suspect]
     Active Substance: OCRELIZUMAB
     Indication: Relapsing-remitting multiple sclerosis
     Dosage: 300 MG AT DAY 0 AND 14, THEN 600 MG EVERY 6 MONTHCONCENTRATE FOR INTRAVENOUS INFUSION
     Route: 042
     Dates: start: 20190909

REACTIONS (2)
  - Maternal exposure before pregnancy [Unknown]
  - Neonatal infection [Recovered/Resolved]
